FAERS Safety Report 14333935 (Version 5)
Quarter: 2018Q1

REPORT INFORMATION
  Report Type: Report from Study
  Country: BE (occurrence: BE)
  Receive Date: 20171228
  Receipt Date: 20180301
  Transmission Date: 20180509
  Serious: Yes (Death, Hospitalization)
  Sender: FDA-Public Use
  Company Number: BE-PFIZER INC-2017543550

PATIENT
  Age: 69 Year
  Sex: Female
  Weight: 92.8 kg

DRUGS (13)
  1. CRIZOTINIB [Suspect]
     Active Substance: CRIZOTINIB
     Indication: COLORECTAL CANCER
     Dosage: 250 MG, 1X/DAY
     Route: 048
     Dates: start: 20171122, end: 20171206
  2. ELIQUIS [Concomitant]
     Active Substance: APIXABAN
     Indication: PROPHYLAXIS
     Dosage: 5 MG, 2X/DAY
     Route: 048
     Dates: start: 20170925
  3. LANOXIN [Concomitant]
     Active Substance: DIGOXIN
     Indication: PROPHYLAXIS
     Dosage: 0.125 MG, 1X/DAY
     Route: 048
     Dates: start: 20170925
  4. BINIMETINIB [Suspect]
     Active Substance: BINIMETINIB
     Indication: COLORECTAL CANCER
     Dosage: 30 MG, 2X/DAY
     Route: 048
     Dates: start: 20171122, end: 20171206
  5. TRADONAL [Concomitant]
     Active Substance: TRAMADOL HYDROCHLORIDE
     Indication: PAIN
     Dosage: 50 MG, AS NEEDED
     Route: 048
     Dates: start: 20170419
  6. STEOVIT D3 [Concomitant]
     Active Substance: CALCIUM CARBONATE\CHOLECALCIFEROL
     Indication: PROPHYLAXIS
     Dosage: 100/800, 1X/DAY
     Route: 048
     Dates: start: 20170228
  7. XGEVA [Concomitant]
     Active Substance: DENOSUMAB
     Indication: OSTEOPOROSIS
     Dosage: 120 MG, SINGLE
     Route: 058
     Dates: start: 20170228, end: 20170228
  8. PANTOMED /01263204/ [Concomitant]
     Active Substance: PANTOPRAZOLE SODIUM
     Indication: PROPHYLAXIS
     Dosage: 20 MG, 1X/DAY
     Route: 048
     Dates: start: 20161220
  9. LITICAN /00690801/ [Concomitant]
     Active Substance: ALIZAPRIDE
     Indication: NAUSEA
     Dosage: 50 MG, AS NEEDED
     Route: 048
     Dates: start: 20170228
  10. VENTOLIN [Concomitant]
     Active Substance: ALBUTEROL SULFATE
     Indication: DYSPNOEA
     Dosage: 2 MG, AS NEEDED
     Route: 048
     Dates: start: 20170925
  11. LASIX [Concomitant]
     Active Substance: FUROSEMIDE
     Indication: HYPERTENSION
     Dosage: 40 MG, 1X/DAY
     Route: 048
     Dates: start: 20171115
  12. L-THYROXIN [Concomitant]
     Active Substance: LEVOTHYROXINE SODIUM
     Indication: HYPOTHYROIDISM
     Dosage: 125 MG, 1X/DAY
     Route: 048
     Dates: start: 20161229
  13. PARACETAMOL CODEINE [Concomitant]
     Active Substance: ACETAMINOPHEN\CODEINE PHOSPHATE
     Indication: PAIN
     Dosage: 500 MG, 4X/DAY
     Route: 048
     Dates: start: 20171115

REACTIONS (1)
  - Cardiac failure [Fatal]

NARRATIVE: CASE EVENT DATE: 20171206
